FAERS Safety Report 25077560 (Version 3)
Quarter: 2025Q2

REPORT INFORMATION
  Report Type: Report from Study
  Country: US (occurrence: US)
  Receive Date: 20250314
  Receipt Date: 20250526
  Transmission Date: 20250717
  Serious: Yes (Other)
  Sender: TAKEDA
  Company Number: US-TAKEDA-2025TUS022493

PATIENT
  Sex: Female

DRUGS (26)
  1. IXAZOMIB [Suspect]
     Active Substance: IXAZOMIB
     Indication: Plasma cell myeloma
  2. IXAZOMIB [Suspect]
     Active Substance: IXAZOMIB
     Dosage: 5 MILLIGRAM, QD
  3. IXAZOMIB [Suspect]
     Active Substance: IXAZOMIB
  4. ACYCLOVIR [Concomitant]
     Active Substance: ACYCLOVIR
  5. ALLOPURINOL [Concomitant]
     Active Substance: ALLOPURINOL
  6. ELIQUIS [Concomitant]
     Active Substance: APIXABAN
  7. AMLODIPINE BESYLATE [Concomitant]
     Active Substance: AMLODIPINE BESYLATE
  8. CREON [Concomitant]
     Active Substance: PANCRELIPASE AMYLASE\PANCRELIPASE LIPASE\PANCRELIPASE PROTEASE
  9. PRILOSEC OTC [Concomitant]
     Active Substance: OMEPRAZOLE MAGNESIUM
  10. AMOXICILLIN [Concomitant]
     Active Substance: AMOXICILLIN
  11. CLARITIN [Concomitant]
     Active Substance: LORATADINE
  12. OXYCODONE AND ACETAMINOPHEN [Concomitant]
     Active Substance: ACETAMINOPHEN\OXYCODONE HYDROCHLORIDE
  13. ONDANSETRON [Concomitant]
     Active Substance: ONDANSETRON
  14. FLUTICASONE PROPIONATE [Concomitant]
     Active Substance: FLUTICASONE PROPIONATE
  15. RESTASIS [Concomitant]
     Active Substance: CYCLOSPORINE
  16. HYOSCYAMINE SULFATE [Concomitant]
     Active Substance: HYOSCYAMINE SULFATE
  17. NALOXONE HCL [Concomitant]
     Active Substance: NALOXONE HYDROCHLORIDE
  18. CAPSAICIN [Concomitant]
     Active Substance: CAPSAICIN
  19. LIDOCAINE [Concomitant]
     Active Substance: LIDOCAINE
  20. XALATAN [Concomitant]
     Active Substance: LATANOPROST
  21. REVLIMID [Concomitant]
     Active Substance: LENALIDOMIDE
  22. SULFAMETHOXAZOLE\TRIMETHOPRIM [Concomitant]
     Active Substance: SULFAMETHOXAZOLE\TRIMETHOPRIM
  23. VANICREAM [Concomitant]
     Active Substance: TITANIUM DIOXIDE\ZINC OXIDE
  24. MELATONIN [Concomitant]
     Active Substance: MELATONIN
  25. VITAMIN D2 [Concomitant]
     Active Substance: ERGOCALCIFEROL
  26. BENZONATATE [Concomitant]
     Active Substance: BENZONATATE

REACTIONS (11)
  - Muscle spasms [Unknown]
  - Hypermetabolism [Unknown]
  - Neuropathy peripheral [Unknown]
  - Paraesthesia [Not Recovered/Not Resolved]
  - Dry skin [Not Recovered/Not Resolved]
  - Pain in extremity [Not Recovered/Not Resolved]
  - Blood potassium decreased [Not Recovered/Not Resolved]
  - Fall [Recovered/Resolved]
  - Cold urticaria [Unknown]
  - Taste disorder [Unknown]
  - Headache [Unknown]
